FAERS Safety Report 12206571 (Version 1)
Quarter: 2016Q1

REPORT INFORMATION
  Report Type: Spontaneous
  Country: US (occurrence: None)
  Receive Date: 20160323
  Receipt Date: 20160323
  Transmission Date: 20160526
  Serious: No
  Sender: FDA-Public Use
  Company Number: None

PATIENT
  Age: 63 Year
  Sex: Female

DRUGS (12)
  1. PROCHLORPER [Concomitant]
  2. LORAZEPAM. [Concomitant]
     Active Substance: LORAZEPAM
  3. NORCO [Concomitant]
     Active Substance: ACETAMINOPHEN\HYDROCODONE BITARTRATE
  4. AFINITOR [Suspect]
     Active Substance: EVEROLIMUS
     Indication: MALIGNANT NIPPLE NEOPLASM
     Route: 048
     Dates: start: 20160201
  5. ESCITALOPRAM [Concomitant]
     Active Substance: ESCITALOPRAM OXALATE
  6. ZOLPIDEM [Concomitant]
     Active Substance: ZOLPIDEM\ZOLPIDEM TARTRATE
  7. ZADITOR [Concomitant]
     Active Substance: KETOTIFEN FUMARATE
  8. COLACE [Concomitant]
     Active Substance: DOCUSATE SODIUM
  9. ASPIRIN. [Concomitant]
     Active Substance: ASPIRIN
  10. AFINITOR [Suspect]
     Active Substance: EVEROLIMUS
     Indication: OVARIAN CANCER
     Route: 048
     Dates: start: 20160201
  11. OMEPRAZOLE. [Concomitant]
     Active Substance: OMEPRAZOLE
  12. FOLIC ACID. [Concomitant]
     Active Substance: FOLIC ACID

REACTIONS (1)
  - Constipation [None]

NARRATIVE: CASE EVENT DATE: 201603
